FAERS Safety Report 20080674 (Version 1)
Quarter: 2021Q4

REPORT INFORMATION
  Report Type: Spontaneous
  Country: US (occurrence: None)
  Receive Date: 20211116
  Receipt Date: 20211116
  Transmission Date: 20220304
  Serious: Yes (Hospitalization)
  Sender: FDA-Public Use
  Company Number: None

PATIENT
  Age: 67 Year
  Sex: Male
  Weight: 106.59 kg

DRUGS (1)
  1. REGEN-COV [Suspect]
     Active Substance: CASIRIVIMAB\IMDEVIMAB
     Indication: COVID-19

REACTIONS (11)
  - Chest pain [None]
  - Dyspnoea [None]
  - Respiratory rate increased [None]
  - Chest discomfort [None]
  - Chills [None]
  - Hypertension [None]
  - Cardiac disorder [None]
  - Anaphylactic reaction [None]
  - Ejection fraction decreased [None]
  - Troponin increased [None]
  - Infusion related reaction [None]

NARRATIVE: CASE EVENT DATE: 20211115
